FAERS Safety Report 9828301 (Version 2)
Quarter: 2014Q1

REPORT INFORMATION
  Report Type: Spontaneous
  Country: IN (occurrence: IN)
  Receive Date: 20140117
  Receipt Date: 20140117
  Transmission Date: 20141002
  Serious: Yes (Other)
  Sender: FDA-Public Use
  Company Number: PHHY2011IN60693

PATIENT
  Age: 25 Year
  Sex: Female

DRUGS (5)
  1. SERTRALINE [Suspect]
     Dosage: 50 MG/DAY
  2. SERTRALINE [Interacting]
     Dosage: 100 MG/DAY
  3. DOTHIEPIN [Interacting]
     Dosage: 75 MG/DAY
  4. AMOXICILLIN [Concomitant]
  5. IBUPROFEN [Concomitant]

REACTIONS (9)
  - Hypomania [Not Recovered/Not Resolved]
  - Logorrhoea [Unknown]
  - Overconfidence [Unknown]
  - Extrapyramidal disorder [Not Recovered/Not Resolved]
  - Salivary hypersecretion [Recovered/Resolved]
  - Bradykinesia [Recovered/Resolved]
  - Tremor [Recovered/Resolved]
  - Drug interaction [Unknown]
  - Drug level increased [Unknown]
